FAERS Safety Report 26187517 (Version 1)
Quarter: 2025Q4

REPORT INFORMATION
  Report Type: Spontaneous
  Country: US (occurrence: US)
  Receive Date: 20251222
  Receipt Date: 20251222
  Transmission Date: 20260118
  Serious: Yes (Other)
  Sender: NOVO NORDISK
  Company Number: US-NOVOPROD-1584945

PATIENT
  Age: 62 Year
  Sex: Female

DRUGS (1)
  1. TRESIBA [Suspect]
     Active Substance: INSULIN DEGLUDEC
     Indication: Type 1 diabetes mellitus
     Dosage: 19 IU, QD
     Route: 058
     Dates: start: 202504, end: 202511

REACTIONS (6)
  - Ophthalmic migraine [Unknown]
  - Agitation [Unknown]
  - Paraesthesia [Unknown]
  - Thyroid hormones decreased [Unknown]
  - Weight increased [Unknown]
  - Blood glucose increased [Unknown]

NARRATIVE: CASE EVENT DATE: 20250101
